FAERS Safety Report 9624464 (Version 1)
Quarter: 2013Q4

REPORT INFORMATION
  Report Type: Report from Study
  Country: NL (occurrence: NL)
  Receive Date: 20131015
  Receipt Date: 20131015
  Transmission Date: 20140711
  Serious: Yes (Hospitalization)
  Sender: FDA-Public Use
  Company Number: NL-JNJFOC-20130915389

PATIENT
  Age: 8 Decade
  Sex: Male

DRUGS (11)
  1. ABIRATERONE [Suspect]
     Indication: PROSTATE CANCER METASTATIC
     Route: 048
     Dates: start: 20111121, end: 20120221
  2. CALCICHEW [Concomitant]
     Route: 065
  3. FENTANYL [Concomitant]
     Route: 065
  4. IBUPROFEN [Concomitant]
     Route: 065
  5. LUCRIN [Concomitant]
     Route: 065
  6. MOLAXOLE [Concomitant]
     Route: 065
  7. OXYNORM [Concomitant]
     Route: 065
  8. PANTOPRAZOLE [Concomitant]
     Route: 065
  9. PCM [Concomitant]
     Route: 065
  10. PREDNISOLONE [Concomitant]
     Route: 065
  11. TAMSULOSIN [Concomitant]
     Route: 065

REACTIONS (1)
  - Haemorrhage intracranial [Unknown]
